FAERS Safety Report 18592174 (Version 2)
Quarter: 2020Q4

REPORT INFORMATION
  Report Type: Report from Study
  Country: JP (occurrence: JP)
  Receive Date: 20201209
  Receipt Date: 20201228
  Transmission Date: 20210114
  Serious: Yes (Other)
  Sender: FDA-Public Use
  Company Number: JP-ALXN-A202013355AA

PATIENT
  Age: 69 Year
  Sex: Male

DRUGS (1)
  1. SOLIRIS [Suspect]
     Active Substance: ECULIZUMAB
     Indication: MYASTHENIA GRAVIS
     Dosage: 900 MG, UNK
     Route: 042
     Dates: start: 20200908

REACTIONS (3)
  - Upper respiratory tract infection [Unknown]
  - Cardiac failure [Recovered/Resolved]
  - Product closure issue [Unknown]

NARRATIVE: CASE EVENT DATE: 20200910
